FAERS Safety Report 9233220 (Version 1)
Quarter: 2013Q2

REPORT INFORMATION
  Report Type: Spontaneous
  Country: US (occurrence: US)
  Receive Date: 20130416
  Receipt Date: 20130416
  Transmission Date: 20140414
  Serious: Yes (Other)
  Sender: FDA-Public Use
  Company Number: US-BANPHARM-20130902

PATIENT
  Age: 69 Year
  Sex: Male
  Weight: 65.77 kg

DRUGS (5)
  1. ALEVE LIQUID GELS 220MG [Suspect]
     Dosage: 1 DF, ONCE,
     Route: 048
     Dates: start: 20120407, end: 20120407
  2. MULTI VITAMIN [Concomitant]
  3. LIPITOR [Concomitant]
  4. ECOTRIN LOW DOSE ASPIRIN [Concomitant]
  5. FISH OIL [Concomitant]

REACTIONS (1)
  - Haematochezia [Recovered/Resolved]
